FAERS Safety Report 14122726 (Version 1)
Quarter: 2017Q4

REPORT INFORMATION
  Report Type: Spontaneous
  Country: US (occurrence: US)
  Receive Date: 20171025
  Receipt Date: 20171025
  Transmission Date: 20180321
  Serious: No
  Sender: FDA-Public Use
  Company Number: US-PFIZER INC-2017452497

PATIENT
  Age: 86 Year
  Sex: Female
  Weight: 53.52 kg

DRUGS (2)
  1. ARMOUR THYROID [Concomitant]
     Active Substance: THYROID, PORCINE
     Indication: HYPOTHYROIDISM
     Dosage: 60 MG, 1X/DAY (EXCEPT ON SUNDAY) (FOR SEVERAL YEARS)
  2. LYRICA [Suspect]
     Active Substance: PREGABALIN
     Indication: MYOFASCIAL PAIN SYNDROME
     Dosage: 25 MG, 2X/DAY (BID)
     Route: 048
     Dates: start: 20171016

REACTIONS (1)
  - Drug ineffective for unapproved indication [Unknown]
